FAERS Safety Report 5360104-6 (Version None)
Quarter: 2007Q2

REPORT INFORMATION
  Report Type: 
  Country: None (occurrence: None)
  Receive Date: 20070618
  Receipt Date: 20070606
  Transmission Date: 20071010
  Serious: Yes (Other)
  Sender: FDA-Public Use
  Company Number: FR-BAYER-200710356BFR

PATIENT

DRUGS (9)
  1. ADALAT [Suspect]
     Indication: UNEVALUABLE EVENT
     Route: 064
     Dates: start: 20070114, end: 20070410
  2. SALBUMOL [Concomitant]
     Indication: UNEVALUABLE EVENT
     Route: 064
     Dates: start: 20070114, end: 20070410
  3. SPASFON [Concomitant]
     Indication: UNEVALUABLE EVENT
     Route: 064
     Dates: start: 20070401, end: 20070410
  4. SPASFON [Concomitant]
     Route: 064
     Dates: start: 20061220, end: 20070401
  5. ASPEGIC 1000 [Concomitant]
     Indication: UNEVALUABLE EVENT
     Route: 064
     Dates: start: 20070114, end: 20070331
  6. PROGESTERONE [Concomitant]
     Indication: UNEVALUABLE EVENT
     Route: 064
     Dates: start: 20061209
  7. PROGESTERONE [Concomitant]
     Route: 064
     Dates: start: 20061220
  8. LOVENOX [Concomitant]
     Indication: UNEVALUABLE EVENT
     Route: 064
     Dates: start: 20061209
  9. CALPEROS [Concomitant]
     Indication: UNEVALUABLE EVENT
     Route: 064

REACTIONS (6)
  - DRUG EXPOSURE DURING PREGNANCY [None]
  - DRUG EXPOSURE VIA BREAST MILK [None]
  - GROWTH RETARDATION [None]
  - HYPOTHERMIA [None]
  - HYPOTHERMIA NEONATAL [None]
  - NEONATAL DISORDER [None]
